FAERS Safety Report 6073923-8 (Version None)
Quarter: 2009Q1

REPORT INFORMATION
  Report Type: 
  Country: None (occurrence: None)
  Receive Date: 20090211
  Receipt Date: 20090203
  Transmission Date: 20090719
  Serious: Yes (Hospitalization, Disabling)
  Sender: FDA-Public Use
  Company Number: MY-MERCK-0902MYS00001

PATIENT
  Age: 79 Year
  Sex: Male

DRUGS (4)
  1. PROSCAR [Suspect]
     Indication: PROSTATOMEGALY
     Route: 048
     Dates: start: 20081201, end: 20090101
  2. AMLODIPINE BESYLATE [Concomitant]
     Route: 065
  3. METOPROLOL TARTRATE [Concomitant]
     Route: 065
  4. GLUCOSAMINE [Concomitant]
     Indication: ARTHRITIS
     Route: 065

REACTIONS (1)
  - COMA [None]
